FAERS Safety Report 4530033-6 (Version None)
Quarter: 2004Q4

REPORT INFORMATION
  Report Type: 
  Country: None (occurrence: None)
  Receive Date: 20041217
  Receipt Date: 20041209
  Transmission Date: 20050328
  Serious: Yes (Hospitalization)
  Sender: FDA-Public Use
  Company Number: US-BRISTOL-MYERS SQUIBB COMPANY-12790341

PATIENT
  Sex: Female

DRUGS (5)
  1. TAXOL [Suspect]
     Indication: BREAST CANCER
     Dosage: THERAPY START 31-AUG-2004
     Route: 042
     Dates: start: 20041202, end: 20041202
  2. CARBOPLATIN [Suspect]
     Indication: BREAST CANCER
     Dosage: THERAPY START 31-AUG-2004
     Route: 042
     Dates: start: 20041202, end: 20041202
  3. HERCEPTIN [Suspect]
     Indication: BREAST CANCER
     Route: 042
     Dates: start: 20041202, end: 20041202
  4. LOPRESSOR [Concomitant]
  5. DIOVAN [Concomitant]

REACTIONS (1)
  - SYNCOPE [None]
